FAERS Safety Report 26101564 (Version 1)
Quarter: 2025Q4

REPORT INFORMATION
  Report Type: Spontaneous
  Country: GB (occurrence: GB)
  Receive Date: 20251128
  Receipt Date: 20251128
  Transmission Date: 20260118
  Serious: Yes (Other)
  Sender: RANBAXY
  Company Number: GB-MHRA-EMIS-1384-9979eb11-6136-484a-8acf-4b68502d2260

PATIENT
  Age: 41 Year
  Sex: Female
  Weight: 61 kg

DRUGS (2)
  1. CITALOPRAM [Suspect]
     Active Substance: CITALOPRAM
     Indication: Product used for unknown indication
     Dosage: 1 DOSAGE FORM, DAILY
     Route: 048
  2. MICONAZOLE [Concomitant]
     Active Substance: MICONAZOLE
     Indication: Product used for unknown indication
     Dosage: 30 GRAM, APPLY THINLY TO AFFECTED AREA THREE TIMES A DAY AND MASSAGE INTO SKIN. CONTINUE UNTIL RESOL
     Route: 065
     Dates: start: 20250519

REACTIONS (3)
  - Heart disease congenital [Unknown]
  - Congenital hypothyroidism [Unknown]
  - Foetal exposure during pregnancy [Unknown]
